FAERS Safety Report 13547993 (Version 2)
Quarter: 2018Q4

REPORT INFORMATION
  Report Type: Spontaneous
  Country: US (occurrence: US)
  Receive Date: 20170516
  Receipt Date: 20181205
  Transmission Date: 20190204
  Serious: Yes (Other)
  Sender: FDA-Public Use
  Company Number: US-ELI_LILLY_AND_COMPANY-US201705003817

PATIENT
  Sex: Male

DRUGS (5)
  1. NOVOLOG [Concomitant]
     Active Substance: INSULIN ASPART
     Indication: PRODUCT USED FOR UNKNOWN INDICATION
  2. HUMALOG [Suspect]
     Active Substance: INSULIN LISPRO
     Indication: TYPE 2 DIABETES MELLITUS
     Dosage: 4 U, UNKNOWN (WITH MEALS)
     Route: 065
  3. HUMALOG [Suspect]
     Active Substance: INSULIN LISPRO
     Dosage: 7 U, UNKNOWN (WITH MEALS)
     Route: 065
     Dates: start: 201711
  4. LANTUS [Concomitant]
     Active Substance: INSULIN GLARGINE
     Indication: DIABETES MELLITUS
  5. HUMALOG [Suspect]
     Active Substance: INSULIN LISPRO
     Indication: TYPE 1 DIABETES MELLITUS
     Dosage: 4 U, UNKNOWN (WITH MEALS)
     Route: 065

REACTIONS (11)
  - Hypoacusis [Not Recovered/Not Resolved]
  - Fatigue [Unknown]
  - Incorrect product administration duration [Unknown]
  - Cardiac dysfunction [Unknown]
  - Weight increased [Unknown]
  - Sleep disorder [Unknown]
  - Visual impairment [Not Recovered/Not Resolved]
  - Drug resistance [Not Recovered/Not Resolved]
  - Prostatic disorder [Not Recovered/Not Resolved]
  - Nasopharyngitis [Recovered/Resolved]
  - Retinal disorder [Unknown]

NARRATIVE: CASE EVENT DATE: 201711
